FAERS Safety Report 20663968 (Version 1)
Quarter: 2022Q2

REPORT INFORMATION
  Report Type: Spontaneous
  Country: US (occurrence: US)
  Receive Date: 20220401
  Receipt Date: 20220401
  Transmission Date: 20220721
  Serious: No
  Sender: FDA-Public Use
  Company Number: US-JNJFOC-20220351254

PATIENT
  Sex: Female

DRUGS (3)
  1. INVEGA SUSTENNA [Suspect]
     Active Substance: PALIPERIDONE PALMITATE
     Indication: Product used for unknown indication
     Route: 030
  2. INVEGA SUSTENNA [Suspect]
     Active Substance: PALIPERIDONE PALMITATE
  3. INVEGA SUSTENNA [Suspect]
     Active Substance: PALIPERIDONE PALMITATE

REACTIONS (9)
  - Urticaria [Unknown]
  - Pruritus [Unknown]
  - Insomnia [Unknown]
  - Laziness [Unknown]
  - Depression [Unknown]
  - Loss of personal independence in daily activities [Unknown]
  - Sluggishness [Unknown]
  - Abnormal behaviour [Unknown]
  - Thinking abnormal [Unknown]
